FAERS Safety Report 20568596 (Version 1)
Quarter: 2022Q1

REPORT INFORMATION
  Report Type: Spontaneous
  Country: IT (occurrence: IT)
  Receive Date: 20220308
  Receipt Date: 20220308
  Transmission Date: 20220423
  Serious: Yes (Other)
  Sender: FDA-Public Use
  Company Number: IT-MYLANLABS-2022M1017774

PATIENT
  Age: 4 Decade
  Sex: Female

DRUGS (2)
  1. FINGOLIMOD [Suspect]
     Active Substance: FINGOLIMOD
     Indication: Relapsing-remitting multiple sclerosis
     Dosage: UNK
     Route: 065
     Dates: start: 2012, end: 201805
  2. CLADRIBINE [Suspect]
     Active Substance: CLADRIBINE
     Indication: Relapsing-remitting multiple sclerosis
     Dosage: 1.75 MILLIGRAM/KILOGRAM
     Route: 048
     Dates: start: 201807

REACTIONS (1)
  - Drug ineffective [Unknown]
